FAERS Safety Report 4799926-9 (Version None)
Quarter: 2005Q4

REPORT INFORMATION
  Report Type: 
  Country: None (occurrence: None)
  Receive Date: 20051017
  Receipt Date: 20051011
  Transmission Date: 20060501
  Serious: Yes (Other)
  Sender: FDA-Public Use
  Company Number: NL-BOEHRINGER INGELHEIM PHARMACEUTICALS, INC.-2005-NL-00280NL

PATIENT
  Sex: Male

DRUGS (3)
  1. MICARDIS [Suspect]
     Indication: HYPERTENSION
     Dosage: 1DD 80MG
     Dates: start: 20040808, end: 20050814
  2. GAVISCON [Concomitant]
     Dosage: TIMES PER AS NECESSARY 1DF
     Dates: start: 20040101
  3. FINIMAL TABLET [Concomitant]
     Dosage: TIMES PER AS NECESSARY 1DF
     Dates: start: 20040101

REACTIONS (1)
  - HEPATITIS TOXIC [None]
